FAERS Safety Report 7753119-1 (Version None)
Quarter: 2011Q3

REPORT INFORMATION
  Report Type: 
  Country: None (occurrence: None)
  Receive Date: 20110915
  Receipt Date: 20110912
  Transmission Date: 20111222
  Serious: Yes (Hospitalization, Other)
  Sender: FDA-Public Use
  Company Number: US-PFIZER INC-2011146399

PATIENT
  Sex: Female

DRUGS (3)
  1. EFFEXOR XR [Concomitant]
     Indication: DEPRESSION
     Dosage: UNK
     Dates: start: 20061215
  2. CHANTIX [Suspect]
     Indication: SMOKING CESSATION THERAPY
     Dosage: ONE TABLET DAILY
     Route: 048
     Dates: start: 20070518, end: 20070822
  3. TRAZODONE [Concomitant]
     Dosage: UNK
     Dates: start: 20061201, end: 20110501

REACTIONS (7)
  - ABNORMAL DREAMS [None]
  - ABNORMAL BEHAVIOUR [None]
  - DEPRESSION [None]
  - AGITATION [None]
  - INTENTIONAL OVERDOSE [None]
  - MOOD ALTERED [None]
  - SUICIDE ATTEMPT [None]
